FAERS Safety Report 5664274-1 (Version None)
Quarter: 2008Q1

REPORT INFORMATION
  Report Type: 
  Country: None (occurrence: None)
  Receive Date: 20080311
  Receipt Date: 20080311
  Transmission Date: 20080703
  Serious: No
  Sender: FDA-Public Use
  Company Number: None

PATIENT
  Age: 8 Year
  Sex: Male
  Weight: 28.5766 kg

DRUGS (2)
  1. ASPIRIN [Suspect]
     Indication: HEADACHE
     Dosage: OTC -NOT LABELED FOR USE-
     Dates: start: 20080301, end: 20080310
  2. ASPIRIN [Suspect]
     Indication: PYREXIA
     Dosage: OTC -NOT LABELED FOR USE-
     Dates: start: 20080301, end: 20080310

REACTIONS (2)
  - DRUG ADMINISTRATION ERROR [None]
  - MEDICATION ERROR [None]
